FAERS Safety Report 11805945 (Version 3)
Quarter: 2015Q4

REPORT INFORMATION
  Report Type: Spontaneous
  Country: US (occurrence: US)
  Receive Date: 20151207
  Receipt Date: 20151223
  Transmission Date: 20160305
  Serious: Yes (Other)
  Sender: FDA-Public Use
  Company Number: US-BAYER-2015-472469

PATIENT
  Age: 41 Year
  Sex: Female

DRUGS (2)
  1. MIRENA [Suspect]
     Active Substance: LEVONORGESTREL
     Indication: MENORRHAGIA
     Dosage: 20 MCG/24HR, CONT
     Route: 015
     Dates: start: 20151112
  2. MIRENA [Suspect]
     Active Substance: LEVONORGESTREL
     Indication: CONTRACEPTION
     Dosage: 20 MCG/24HR, CONT
     Route: 015
     Dates: start: 20150307, end: 20151112

REACTIONS (6)
  - Genital haemorrhage [Recovered/Resolved]
  - Vaginal haemorrhage [None]
  - Device dislocation [Recovered/Resolved]
  - Abdominal pain lower [None]
  - Menorrhagia [None]
  - Embedded device [Recovered/Resolved]

NARRATIVE: CASE EVENT DATE: 2015
